FAERS Safety Report 7510191-1 (Version None)
Quarter: 2011Q2

REPORT INFORMATION
  Report Type: 
  Country: None (occurrence: None)
  Receive Date: 20110527
  Receipt Date: 20110520
  Transmission Date: 20111010
  Serious: Yes (Hospitalization, Other)
  Sender: FDA-Public Use
  Company Number: PHHO2011US05231

PATIENT
  Sex: Female
  Weight: 56.7 kg

DRUGS (2)
  1. ZORTRESS [Suspect]
     Indication: LIVER TRANSPLANT
     Dosage: 2 MG, BID
     Route: 048
     Dates: start: 20100324, end: 20110222
  2. TACROLIMUS [Suspect]
     Indication: LIVER TRANSPLANT
     Dosage: 2 MG, BID
     Route: 048
     Dates: start: 20100223

REACTIONS (5)
  - LUNG NEOPLASM [None]
  - HERPES SIMPLEX [None]
  - CYTOMEGALOVIRUS INFECTION [None]
  - BILIARY CIRRHOSIS [None]
  - PANCYTOPENIA [None]
